FAERS Safety Report 8013620-2 (Version None)
Quarter: 2011Q4

REPORT INFORMATION
  Report Type: 
  Country: None (occurrence: None)
  Receive Date: 20111229
  Receipt Date: 20111227
  Transmission Date: 20120403
  Serious: Yes (Other)
  Sender: FDA-Public Use
  Company Number: US-PFIZER INC-2011278715

PATIENT
  Sex: Female

DRUGS (1)
  1. GEODON [Suspect]
     Dosage: UNK

REACTIONS (7)
  - NERVOUSNESS [None]
  - FEELING ABNORMAL [None]
  - FEELING DRUNK [None]
  - INCREASED APPETITE [None]
  - AGGRESSION [None]
  - DECREASED APPETITE [None]
  - DISORIENTATION [None]
